FAERS Safety Report 9969846 (Version 1)
Quarter: 2014Q1

REPORT INFORMATION
  Report Type: Report from Study
  Country: US (occurrence: US)
  Receive Date: 20140306
  Receipt Date: 20140306
  Transmission Date: 20141002
  Serious: Yes (Other)
  Sender: FDA-Public Use
  Company Number: US-ASTRAZENECA-2014SE11228

PATIENT
  Age: 86 Year
  Sex: Female
  Weight: 67.1 kg

DRUGS (12)
  1. NEXIUM [Suspect]
     Indication: GASTROOESOPHAGEAL REFLUX DISEASE
     Route: 048
     Dates: start: 201208
  2. PRILOSEC OTC [Suspect]
     Indication: GASTROOESOPHAGEAL REFLUX DISEASE
     Dosage: UNKNOWN BID
     Route: 048
     Dates: start: 2008, end: 2010
  3. ISORSOBIDE [Concomitant]
     Indication: CARDIAC DISORDER
     Route: 048
     Dates: start: 2012
  4. HYDROCODONE [Concomitant]
     Indication: BACK PAIN
     Dosage: 5-325MG Q7-10HR
     Route: 048
     Dates: start: 1972
  5. FENOFIBRATE [Concomitant]
     Indication: BLOOD TRIGLYCERIDES ABNORMAL
     Dosage: UNKNOWN DAILY
     Route: 048
     Dates: start: 2013
  6. LORAZEPAM [Concomitant]
     Indication: SLEEP DISORDER
     Route: 048
     Dates: start: 201308
  7. MELOXICAM [Concomitant]
     Indication: BLOOD CHOLESTEROL ABNORMAL
     Route: 048
     Dates: start: 201311
  8. FUROSEMIDE [Concomitant]
     Indication: CARDIAC DISORDER
     Route: 048
     Dates: start: 201401
  9. MECLIZINE [Concomitant]
     Indication: NAUSEA
     Route: 048
     Dates: start: 1994
  10. MECLIZINE [Concomitant]
     Indication: DIZZINESS
     Route: 048
     Dates: start: 1994
  11. B12 [Concomitant]
     Indication: SUPPLEMENTATION THERAPY
     Dosage: 1000MCG Q2WEEKS
     Dates: start: 201312
  12. TUMS [Concomitant]
     Indication: DYSPEPSIA

REACTIONS (13)
  - Gastric mucosa erythema [Unknown]
  - Gastric disorder [Not Recovered/Not Resolved]
  - Gastrointestinal infection [Not Recovered/Not Resolved]
  - Dyspepsia [Not Recovered/Not Resolved]
  - Stress [Not Recovered/Not Resolved]
  - Hiatus hernia [Not Recovered/Not Resolved]
  - Nausea [Unknown]
  - Dizziness [Unknown]
  - Abdominal discomfort [Not Recovered/Not Resolved]
  - Dyspepsia [Recovered/Resolved]
  - Chest pain [Recovered/Resolved]
  - Off label use [Not Recovered/Not Resolved]
  - Drug ineffective [Recovered/Resolved]
